FAERS Safety Report 4821948-X (Version None)
Quarter: 2005Q4

REPORT INFORMATION
  Report Type: 
  Country: None (occurrence: None)
  Receive Date: 20051103
  Receipt Date: 20051020
  Transmission Date: 20060501
  Serious: Yes (Congenital Anomaly)
  Sender: FDA-Public Use
  Company Number: DSA_27317_2005

PATIENT
  Age: 1 Day
  Sex: Male
  Weight: 3.18 kg

DRUGS (4)
  1. TEMESTA [Suspect]
     Dosage: 0.5 MG 1 DAY TRAN-P
     Route: 064
     Dates: start: 20041201, end: 20050108
  2. HALDOL [Suspect]
     Dosage: 3 MG Q DAY TRAN-P
     Route: 064
     Dates: start: 20041201, end: 20050821
  3. CANNABIS [Concomitant]
  4. COCAINE [Concomitant]

REACTIONS (2)
  - DRUG EXPOSURE DURING PREGNANCY [None]
  - TALIPES [None]
